FAERS Safety Report 9135039 (Version 1)
Quarter: 2013Q1

REPORT INFORMATION
  Report Type: Spontaneous
  Country: US (occurrence: US)
  Receive Date: 20130304
  Receipt Date: 20130304
  Transmission Date: 20140127
  Serious: No
  Sender: FDA-Public Use
  Company Number: US-009507513-1302USA013375

PATIENT
  Sex: Female
  Weight: 91.61 kg

DRUGS (1)
  1. IMPLANON [Suspect]
     Indication: CONTRACEPTION
     Dosage: 1 ROD FOR 3 YEAR USE ON RIGHT ARM
     Route: 059
     Dates: start: 20120309

REACTIONS (1)
  - Metrorrhagia [Unknown]
